FAERS Safety Report 5957623-8 (Version None)
Quarter: 2008Q4

REPORT INFORMATION
  Report Type: 
  Country: None (occurrence: None)
  Receive Date: 20081119
  Receipt Date: 20081117
  Transmission Date: 20090506
  Serious: Yes (Hospitalization)
  Sender: FDA-Public Use
  Company Number: NL-BRISTOL-MYERS SQUIBB COMPANY-14409908

PATIENT
  Age: 77 Year
  Sex: Male
  Weight: 74 kg

DRUGS (4)
  1. KENACORT [Suspect]
     Indication: OSTEOARTHRITIS
     Dosage: 1 DF=40MG/ML
     Route: 014
     Dates: start: 20080911
  2. FLUTICASONE PROPIONATE [Concomitant]
  3. SALMETEROL [Concomitant]
  4. BUDESONIDE [Concomitant]

REACTIONS (2)
  - MOVEMENT DISORDER [None]
  - PAIN [None]
